FAERS Safety Report 22835078 (Version 11)
Quarter: 2024Q3

REPORT INFORMATION
  Report Type: Report from Study
  Country: US (occurrence: US)
  Receive Date: 20230818
  Receipt Date: 20240708
  Transmission Date: 20241016
  Serious: Yes (Other)
  Sender: ACADIA PHARMACEUTICALS
  Company Number: US-ACADIA PHARMACEUTICALS INC.-ACA-2023-TRF-003166

PATIENT
  Age: 15 Year
  Sex: Female

DRUGS (13)
  1. DAYBUE [Suspect]
     Active Substance: TROFINETIDE
     Indication: Rett syndrome
     Dosage: UNK VIA G-TUBE
     Dates: start: 20230602
  2. DAYBUE [Suspect]
     Active Substance: TROFINETIDE
     Dosage: 15 MILLILITER, BID VIA G-TUBE
     Dates: start: 20230720
  3. DAYBUE [Suspect]
     Active Substance: TROFINETIDE
     Dosage: 10 MILLILITER, BID VIA G-TUBE
  4. DAYBUE [Suspect]
     Active Substance: TROFINETIDE
     Dosage: 20 MILLILITER, BID VIA G-TUBE
  5. DAYBUE [Suspect]
     Active Substance: TROFINETIDE
     Dosage: 25 MILLILITER, BID VIA G-TUBE
  6. DAYBUE [Suspect]
     Active Substance: TROFINETIDE
     Dosage: 35 MILLILITER, BID VIA G-TUBE
  7. DAYBUE [Suspect]
     Active Substance: TROFINETIDE
     Dosage: 40 MILLILITER, BID VIA G-TUBE
  8. EPIDIOLEX [Concomitant]
     Active Substance: CANNABIDIOL
     Dosage: 2.5 MILLILITER, BID
  9. EPIDIOLEX [Concomitant]
     Active Substance: CANNABIDIOL
     Dosage: 250 MILLIGRAM
  10. KEPPRA [Concomitant]
     Active Substance: LEVETIRACETAM
     Dosage: 2 MILLILITER, BID
  11. KEPPRA [Concomitant]
     Active Substance: LEVETIRACETAM
     Dosage: 14 MILLILITER, BID
  12. KEPPRA [Concomitant]
     Active Substance: LEVETIRACETAM
     Dosage: 1400 MILLIGRAM
  13. TOPAMAX [Concomitant]
     Active Substance: TOPIRAMATE
     Dosage: 175 MILLIGRAM, BID

REACTIONS (15)
  - Condition aggravated [Not Recovered/Not Resolved]
  - Seizure [Not Recovered/Not Resolved]
  - Seizure [Not Recovered/Not Resolved]
  - Seizure [Not Recovered/Not Resolved]
  - Productive cough [Not Recovered/Not Resolved]
  - Underdose [Not Recovered/Not Resolved]
  - Device breakage [Unknown]
  - Product dose omission issue [Unknown]
  - Constipation [Recovered/Resolved]
  - Pyrexia [Recovered/Resolved]
  - Diarrhoea [Not Recovered/Not Resolved]
  - Pyrexia [Not Recovered/Not Resolved]
  - Vomiting [Not Recovered/Not Resolved]
  - Diarrhoea [Not Recovered/Not Resolved]
  - Diarrhoea [Recovered/Resolved]

NARRATIVE: CASE EVENT DATE: 20230723
